FAERS Safety Report 17969172 (Version 3)
Quarter: 2024Q3

REPORT INFORMATION
  Report Type: Spontaneous
  Country: US (occurrence: US)
  Receive Date: 20200701
  Receipt Date: 20240710
  Transmission Date: 20241017
  Serious: No
  Sender: PIERRE FABRE MEDICAMENT
  Company Number: US-PFM-2020-03070

PATIENT
  Sex: Male
  Weight: 8.617 kg

DRUGS (3)
  1. HEMANGEOL [Suspect]
     Active Substance: PROPRANOLOL HYDROCHLORIDE
     Indication: Infantile haemangioma
     Dosage: 3.6 ML, BID (2/DAY)
     Route: 065
  2. HEMANGEOL [Suspect]
     Active Substance: PROPRANOLOL HYDROCHLORIDE
     Indication: Off label use
     Dosage: 4.6 ML, BID (2/DAY)
     Route: 065
  3. HEMANGEOL [Suspect]
     Active Substance: PROPRANOLOL HYDROCHLORIDE
     Dosage: 4.6ML TWICE DAILY
     Route: 065

REACTIONS (6)
  - Pyrexia [Unknown]
  - Nasopharyngitis [Unknown]
  - Labyrinthitis [Not Recovered/Not Resolved]
  - Alopecia [Unknown]
  - Product administered to patient of inappropriate age [Unknown]
  - Off label use [Unknown]
